FAERS Safety Report 14066925 (Version 2)
Quarter: 2017Q4

REPORT INFORMATION
  Report Type: Spontaneous
  Country: US (occurrence: US)
  Receive Date: 20171009
  Receipt Date: 20171124
  Transmission Date: 20180321
  Serious: No
  Sender: FDA-Public Use
  Company Number: US-ELI_LILLY_AND_COMPANY-US201709011950

PATIENT
  Sex: Female

DRUGS (5)
  1. HUMATROPE [Suspect]
     Active Substance: SOMATROPIN
     Indication: HYPOPITUITARISM
     Dosage: 0.3 MG, UNKNOWN
     Route: 058
     Dates: start: 2006
  2. HUMATROPE [Suspect]
     Active Substance: SOMATROPIN
     Indication: HYPOPITUITARISM
     Dosage: 0.5 UNK, UNK
     Route: 058
     Dates: start: 2016
  3. HUMATROPE [Suspect]
     Active Substance: SOMATROPIN
     Dosage: 0.9 MG, UNKNOWN
     Route: 058
     Dates: start: 201708
  4. HUMATROPE [Suspect]
     Active Substance: SOMATROPIN
     Dosage: 0.6 MG, UNKNOWN
     Route: 058
     Dates: start: 2016
  5. HUMATROPE [Suspect]
     Active Substance: SOMATROPIN
     Indication: HYPOPITUITARISM
     Dosage: UNK, UNKNOWN
     Route: 065

REACTIONS (4)
  - Insulin-like growth factor decreased [Recovering/Resolving]
  - Drug dose omission [Not Recovered/Not Resolved]
  - Intentional product misuse [Recovered/Resolved]
  - Arthritis [Not Recovered/Not Resolved]
